FAERS Safety Report 25655118 (Version 1)
Quarter: 2025Q3

REPORT INFORMATION
  Report Type: Spontaneous
  Country: CA (occurrence: CA)
  Receive Date: 20250807
  Receipt Date: 20250807
  Transmission Date: 20251020
  Serious: Yes (Hospitalization)
  Sender: PFIZER
  Company Number: CA-PFIZER INC-202500158585

PATIENT
  Age: 57 Year
  Sex: Male
  Weight: 83 kg

DRUGS (10)
  1. FRAGMIN [Suspect]
     Active Substance: DALTEPARIN SODIUM
     Indication: Thrombosis prophylaxis
     Dosage: 5000.0 UNITS, 2 EVERY 1 DAYS
     Route: 058
  2. ACETAMINOPHEN [Concomitant]
     Active Substance: ACETAMINOPHEN
  3. CEFAZOLIN [Concomitant]
     Active Substance: CEFAZOLIN
  4. CEPHALEXIN [Concomitant]
     Active Substance: CEPHALEXIN
  5. FILGRASTIM [Concomitant]
     Active Substance: FILGRASTIM
  6. LORATADINE [Concomitant]
     Active Substance: LORATADINE
     Route: 065
  7. ONDANSETRON [Concomitant]
     Active Substance: ONDANSETRON
  8. POLYETHYLENE GLYCOLS [Concomitant]
     Active Substance: POLYETHYLENE GLYCOLS
  9. THIAMINE [Concomitant]
     Active Substance: THIAMINE
  10. ZOLEDRONIC ACID [Concomitant]
     Active Substance: ZOLEDRONIC ACID

REACTIONS (2)
  - Gastric ulcer [Recovered/Resolved]
  - Upper gastrointestinal haemorrhage [Recovered/Resolved]
